FAERS Safety Report 9103179 (Version 2)
Quarter: 2013Q1

REPORT INFORMATION
  Report Type: Spontaneous
  Country: US (occurrence: US)
  Receive Date: 20130219
  Receipt Date: 20130319
  Transmission Date: 20140127
  Serious: Yes (Other)
  Sender: FDA-Public Use
  Company Number: US-BAYER-2013-016373

PATIENT
  Age: 1 Week
  Sex: Male

DRUGS (1)
  1. CIPRO [Suspect]

REACTIONS (2)
  - Vasculitis [None]
  - Foetal exposure timing unspecified [None]
